FAERS Safety Report 10005230 (Version 2)
Quarter: 2014Q2

REPORT INFORMATION
  Report Type: Spontaneous
  Country: US (occurrence: US)
  Receive Date: 20140312
  Receipt Date: 20140611
  Transmission Date: 20141212
  Serious: No
  Sender: FDA-Public Use
  Company Number: US-INCYTE CORPORATION-2014IN000005

PATIENT
  Age: 70 Year
  Sex: Male
  Weight: 100.23 kg

DRUGS (7)
  1. JAKAFI [Suspect]
     Indication: MYELODYSPLASTIC SYNDROME
     Dosage: 10 MG, BID
     Route: 048
     Dates: start: 201301, end: 2013
  2. JAKAFI [Suspect]
     Dosage: 10 MG, BID
     Route: 048
     Dates: start: 20131213
  3. ECOTRIN [Concomitant]
  4. EXCEDRIN EXTRA STRENGTH [Concomitant]
  5. LEVOTHYROXINE [Concomitant]
  6. WARFARIN [Concomitant]
  7. ZANTAC [Concomitant]

REACTIONS (1)
  - Blood alkaline phosphatase increased [Not Recovered/Not Resolved]
